FAERS Safety Report 4802322-9 (Version None)
Quarter: 2005Q4

REPORT INFORMATION
  Report Type: 
  Country: None (occurrence: None)
  Receive Date: 20051012
  Receipt Date: 20051007
  Transmission Date: 20060501
  Serious: Yes (Hospitalization, Other)
  Sender: FDA-Public Use
  Company Number: TCI2005A03871

PATIENT
  Age: 80 Year
  Sex: Male

DRUGS (3)
  1. LANSAP [Suspect]
     Indication: HELICOBACTER INFECTION
     Dosage: 1 CARD (0.5 CARD, 2 IN 1 D) PER ORAL
     Route: 048
     Dates: start: 20050826, end: 20050828
  2. LANSAP [Suspect]
     Indication: HYPERTENSION
     Dosage: 1 CARD (0.5 CARD, 2 IN 1 D) PER ORAL
     Route: 048
     Dates: start: 20050826, end: 20050828
  3. CONIEL                    (BENIDIPINE HYDROCHLORIDE) [Concomitant]

REACTIONS (7)
  - ALPHA HAEMOLYTIC STREPTOCOCCAL INFECTION [None]
  - CITROBACTER INFECTION [None]
  - COLITIS [None]
  - CULTURE POSITIVE [None]
  - ESCHERICHIA INFECTION [None]
  - KLEBSIELLA INFECTION [None]
  - PSEUDOMONAS INFECTION [None]
